FAERS Safety Report 25445131 (Version 1)
Quarter: 2025Q2

REPORT INFORMATION
  Report Type: Spontaneous
  Country: US (occurrence: None)
  Receive Date: 20250616
  Receipt Date: 20250616
  Transmission Date: 20250716
  Serious: No
  Sender: FDA-CTU
  Company Number: None

PATIENT
  Age: 56 Year
  Sex: Male
  Weight: 90.9 kg

DRUGS (1)
  1. SOTATERCEPT [Suspect]
     Active Substance: SOTATERCEPT
     Indication: Pulmonary arterial hypertension
     Route: 058
     Dates: start: 20240814

REACTIONS (2)
  - Macule [None]
  - Pigmentation disorder [None]

NARRATIVE: CASE EVENT DATE: 20250610
